FAERS Safety Report 4314234-8 (Version None)
Quarter: 2004Q1

REPORT INFORMATION
  Report Type: 
  Country: None (occurrence: None)
  Receive Date: 20040309
  Receipt Date: 20040309
  Transmission Date: 20041129
  Serious: Yes (Death)
  Sender: FDA-Public Use
  Company Number: None

PATIENT
  Age: 82 Year
  Sex: Male
  Weight: 68.7 kg

DRUGS (1)
  1. AMIODARONE HCL [Suspect]
     Indication: TACHYCARDIA
     Dosage: 0.5 MG PER MINUTE INTRAVENOUS
     Route: 042
     Dates: start: 20040208, end: 20040209

REACTIONS (4)
  - ELECTROCARDIOGRAM QT PROLONGED [None]
  - PULSE ABSENT [None]
  - VENTRICULAR FIBRILLATION [None]
  - VENTRICULAR TACHYCARDIA [None]
